FAERS Safety Report 6925142-8 (Version None)
Quarter: 2010Q3

REPORT INFORMATION
  Report Type: 
  Country: None (occurrence: None)
  Receive Date: 20100816
  Receipt Date: 20100812
  Transmission Date: 20110219
  Serious: Yes (Other)
  Sender: FDA-Public Use
  Company Number: US-SP-2010-01728

PATIENT
  Sex: Male

DRUGS (2)
  1. THERACYS [Suspect]
     Indication: BLADDER CANCER
     Route: 065
     Dates: start: 20070420, end: 20070525
  2. THERACYS [Suspect]
     Route: 065
     Dates: start: 20070420, end: 20070525

REACTIONS (1)
  - CYSTITIS BACTERIAL [None]
